FAERS Safety Report 4895137-7 (Version None)
Quarter: 2006Q1

REPORT INFORMATION
  Report Type: 
  Country: None (occurrence: None)
  Receive Date: 20060125
  Receipt Date: 20060112
  Transmission Date: 20060701
  Serious: Yes (Death, Other)
  Sender: FDA-Public Use
  Company Number: 2006RR-01489

PATIENT
  Age: 97 Year
  Sex: Female

DRUGS (8)
  1. METFORMIN HCL [Suspect]
     Indication: DIABETES MELLITUS
     Dosage: 1 G, BID, ORAL
     Route: 048
  2. FRUSEMIDE TABLET BP (FUROSEMIDE) [Concomitant]
  3. PERINDOPRIL [Concomitant]
  4. DISPERSIBLE ASPIRIN TABLETS BP [Concomitant]
  5. SIMVASTATIN [Concomitant]
  6. FERROUS SULPHATE BP (FERROUS SULPHATE) [Concomitant]
  7. CLOPIDOGREL [Concomitant]
  8. LANSOPRAZOLE [Concomitant]

REACTIONS (6)
  - ANOREXIA [None]
  - DIARRHOEA [None]
  - LACTIC ACIDOSIS [None]
  - LOWER RESPIRATORY TRACT INFECTION [None]
  - RENAL FAILURE ACUTE [None]
  - THIRST DECREASED [None]
